FAERS Safety Report 25093683 (Version 2)
Quarter: 2025Q4

REPORT INFORMATION
  Report Type: Spontaneous
  Country: US (occurrence: US)
  Receive Date: 20250319
  Receipt Date: 20251002
  Transmission Date: 20260117
  Serious: Yes (Other)
  Sender: AMGEN
  Company Number: US-AMGEN-USASP2025050375

PATIENT
  Age: 37 Year
  Sex: Female

DRUGS (2)
  1. TAVNEOS [Suspect]
     Active Substance: AVACOPAN
     Indication: Granulomatosis with polyangiitis
     Dosage: 3 DOSAGE FORM, BID (3 CAPSULES TWICE DAILY 10MG EACH CAPSULES)
     Route: 048
     Dates: start: 2022
  2. PREDNISONE [Suspect]
     Active Substance: PREDNISONE
     Indication: Product used for unknown indication
     Dosage: UNK
     Route: 065
     Dates: start: 2018, end: 2023

REACTIONS (15)
  - Pneumonia [Unknown]
  - Sjogren^s syndrome [Unknown]
  - Mood altered [Unknown]
  - Weight increased [Unknown]
  - Abdominal distension [Unknown]
  - Arthritis [Unknown]
  - Postural orthostatic tachycardia syndrome [Unknown]
  - Anaemia [Unknown]
  - Nasopharyngitis [Unknown]
  - Tonsillectomy [Unknown]
  - Nasal septum deviation [Unknown]
  - Brain fog [Not Recovered/Not Resolved]
  - Epistaxis [Recovered/Resolved]
  - Fall [Unknown]
  - Contusion [Unknown]

NARRATIVE: CASE EVENT DATE: 20230101
